FAERS Safety Report 7852101-3 (Version None)
Quarter: 2011Q4

REPORT INFORMATION
  Report Type: 
  Country: None (occurrence: None)
  Receive Date: 20111026
  Receipt Date: 20111021
  Transmission Date: 20120403
  Serious: Yes (Hospitalization, Other)
  Sender: FDA-Public Use
  Company Number: IN-PFIZER INC-2011228091

PATIENT
  Age: 65 Year
  Sex: Female

DRUGS (1)
  1. AROMASIN [Suspect]
     Indication: BREAST CANCER
     Dosage: 25 MG, 1X/DAY
     Route: 048
     Dates: start: 20110630, end: 20110924

REACTIONS (12)
  - OROPHARYNGEAL PAIN [None]
  - INSOMNIA [None]
  - LIMB DISCOMFORT [None]
  - MALAISE [None]
  - APHASIA [None]
  - CONVULSION [None]
  - DECREASED APPETITE [None]
  - CONSTIPATION [None]
  - DEPRESSION [None]
  - ENCEPHALITIS VIRAL [None]
  - ALOPECIA [None]
  - PYREXIA [None]
